FAERS Safety Report 8164646-X (Version None)
Quarter: 2012Q1

REPORT INFORMATION
  Report Type: 
  Country: None (occurrence: None)
  Receive Date: 20120227
  Receipt Date: 20120217
  Transmission Date: 20120608
  Serious: Yes (Other)
  Sender: FDA-Public Use
  Company Number: US-BIOGENIDEC-2012BI006626

PATIENT
  Age: 47 Year
  Sex: Female

DRUGS (2)
  1. DEPAKOTE [Concomitant]
     Indication: CONVULSION
  2. TYSABRI [Suspect]
     Indication: MULTIPLE SCLEROSIS
     Route: 042
     Dates: start: 20110610, end: 20111215

REACTIONS (2)
  - BLOOD PRESSURE INCREASED [None]
  - CONVULSION [None]
